FAERS Safety Report 8309651-5 (Version None)
Quarter: 2012Q2

REPORT INFORMATION
  Report Type: 
  Country: None (occurrence: None)
  Receive Date: 20120423
  Receipt Date: 20120410
  Transmission Date: 20120825
  Serious: Yes (Death, Other)
  Sender: FDA-Public Use
  Company Number: 2012US0138

PATIENT
  Age: 11 Year
  Sex: Male

DRUGS (6)
  1. ANAKINRA (ANAKINRA) [Suspect]
     Indication: JUVENILE ARTHRITIS
  2. DECADRON [Concomitant]
  3. CYCLOSPORINE [Concomitant]
  4. ARISTOPAN (TRIAMCINOLONE HEXACETONIDE) [Concomitant]
  5. PREDNISONE TAB [Concomitant]
  6. NSAID (NSAID) [Concomitant]

REACTIONS (19)
  - ARTHRALGIA [None]
  - OROPHARYNGEAL PAIN [None]
  - VIRAL INFECTION [None]
  - WHEEZING [None]
  - MYOCARDITIS [None]
  - MUSCULOSKELETAL STIFFNESS [None]
  - UPPER RESPIRATORY TRACT CONGESTION [None]
  - TACHYPNOEA [None]
  - CHEST PAIN [None]
  - FATIGUE [None]
  - PYREXIA [None]
  - TACHYCARDIA [None]
  - PERICARDITIS [None]
  - VOMITING [None]
  - HEADACHE [None]
  - COUGH [None]
  - DECREASED APPETITE [None]
  - NAUSEA [None]
  - HYPERTENSION [None]
